FAERS Safety Report 24312383 (Version 1)
Quarter: 2024Q3

REPORT INFORMATION
  Report Type: Report from Study
  Country: US (occurrence: US)
  Receive Date: 20240912
  Receipt Date: 20240912
  Transmission Date: 20241016
  Serious: Yes (Other)
  Sender: ABBVIE
  Company Number: US-ABBVIE-5910149

PATIENT
  Sex: Female

DRUGS (1)
  1. RINVOQ [Suspect]
     Active Substance: UPADACITINIB
     Indication: Rheumatoid arthritis
     Route: 048
     Dates: start: 20220902

REACTIONS (9)
  - Bursitis [Recovering/Resolving]
  - Inflammation [Recovering/Resolving]
  - Oedema peripheral [Recovering/Resolving]
  - Synovial cyst [Unknown]
  - Sleep apnoea syndrome [Recovering/Resolving]
  - Spinal disorder [Unknown]
  - Gait inability [Unknown]
  - Meniscus injury [Recovering/Resolving]
  - Rheumatoid arthritis [Recovering/Resolving]
